FAERS Safety Report 9958683 (Version 3)
Quarter: 2014Q1

REPORT INFORMATION
  Report Type: Spontaneous
  Country: US (occurrence: None)
  Receive Date: 20140227
  Receipt Date: 20140326
  Transmission Date: 20141002
  Serious: Yes (Other)
  Sender: FDA-Public Use
  Company Number: AXC-2014-000128

PATIENT
  Age: 77 Year
  Sex: Female

DRUGS (12)
  1. ZENPEP [Suspect]
     Indication: PANCREATIC INSUFFICIENCY
     Dosage: 100000 USP, QD, PO
     Route: 048
     Dates: start: 20140109, end: 20140217
  2. ZENPEP [Suspect]
     Dosage: 100000 USP, QD, PO
     Route: 048
     Dates: start: 20140109, end: 20140217
  3. ATENOLOL (ATENOLOL) [Concomitant]
  4. SYNTHROID (LEVOTHYROXINE SODIUM) [Concomitant]
  5. ZETIA (EZETIMIBE) [Concomitant]
  6. ASPIRIN (ACETYLSALICYLIC ACID) [Concomitant]
  7. OMEPRAZOLE (OMEPRAZOLE) [Concomitant]
  8. AMITRIPTYLINE (AMITRIPTYLINE) [Concomitant]
  9. NORVAS (AMLODIPINE BESILATE) [Concomitant]
  10. INDAPAMIDE (INDAPAMIDE) [Concomitant]
  11. ALPRAZOLAM (ALPRAZOLAM) [Concomitant]
  12. FLUTICASONE (FLUTICASONE) [Concomitant]

REACTIONS (1)
  - Gout [None]
